FAERS Safety Report 8031616-1 (Version None)
Quarter: 2012Q1

REPORT INFORMATION
  Report Type: 
  Country: None (occurrence: None)
  Receive Date: 20120109
  Receipt Date: 20120104
  Transmission Date: 20120608
  Serious: Yes (Hospitalization, Disabling)
  Sender: FDA-Public Use
  Company Number: GXKR2012DE000483

PATIENT

DRUGS (2)
  1. SIMVASTATIN [Suspect]
     Dosage: DAILY DOSE: 20 MG MILLGRAM(S) EVERY DAYS
     Route: 048
     Dates: end: 20110721
  2. EZETIMIBE [Suspect]
     Indication: HYPERCHOLESTEROLAEMIA
     Dosage: 1 DF, QD
     Route: 048

REACTIONS (5)
  - MONOPARESIS [None]
  - RHABDOMYOLYSIS [None]
  - TENDERNESS [None]
  - PARESIS [None]
  - MYOPATHY [None]
